FAERS Safety Report 14328469 (Version 1)
Quarter: 2017Q4

REPORT INFORMATION
  Report Type: Spontaneous
  Country: LU (occurrence: LU)
  Receive Date: 20171227
  Receipt Date: 20171227
  Transmission Date: 20180321
  Serious: Yes (Other)
  Sender: FDA-Public Use
  Company Number: LU-GLAXOSMITHKLINE-LU2017196894

PATIENT
  Age: 26 Year
  Sex: Male

DRUGS (12)
  1. FORTECORTIN [Suspect]
     Active Substance: DEXAMETHASONE
     Indication: APPENDICECTOMY
     Dosage: UNK
     Route: 065
  2. PROPOFOL. [Suspect]
     Active Substance: PROPOFOL
     Indication: APPENDICECTOMY
     Dosage: UNK
     Route: 042
  3. CHLORHEXIDINE DIGLUCONATE [Suspect]
     Active Substance: CHLORHEXIDINE
     Indication: APPENDICECTOMY
     Dosage: UNK
     Route: 061
  4. METRONIDAZOLE. [Suspect]
     Active Substance: METRONIDAZOLE
     Indication: APPENDICECTOMY
     Dosage: UNK
     Route: 065
  5. CEFUROXIME. [Suspect]
     Active Substance: CEFUROXIME
     Indication: APPENDICECTOMY
     Dosage: UNK
     Route: 065
  6. SUFENTA [Suspect]
     Active Substance: SUFENTANIL CITRATE
     Indication: APPENDICECTOMY
     Dosage: UNK
     Route: 042
  7. PARACETAMOL [Suspect]
     Active Substance: ACETAMINOPHEN
     Indication: APPENDICECTOMY
     Dosage: UNK
     Route: 065
  8. POVIDONE-IODINE. [Suspect]
     Active Substance: POVIDONE-IODINE
     Indication: APPENDICECTOMY
     Dosage: UNK
     Route: 061
  9. ESMERON [Suspect]
     Active Substance: ROCURONIUM BROMIDE
     Indication: APPENDICECTOMY
     Dosage: UNK
     Route: 042
  10. GELOFUSINE [Suspect]
     Active Substance: GELATIN\SODIUM CHLORIDE
     Indication: APPENDICECTOMY
     Dosage: UNK
     Route: 041
  11. TARADYL [Suspect]
     Active Substance: KETOROLAC\KETOROLAC TROMETHAMINE
     Indication: APPENDICECTOMY
     Dosage: UNK
     Route: 016
  12. LIDOCAINE. [Suspect]
     Active Substance: LIDOCAINE
     Indication: APPENDICECTOMY
     Dosage: UNK
     Route: 065

REACTIONS (1)
  - Anaphylactic reaction [Recovered/Resolved]

NARRATIVE: CASE EVENT DATE: 20170912
